FAERS Safety Report 10207674 (Version 1)
Quarter: 2014Q2

REPORT INFORMATION
  Report Type: Spontaneous
  Country: US (occurrence: US)
  Receive Date: 20140530
  Receipt Date: 20140530
  Transmission Date: 20141212
  Serious: Yes (Death)
  Sender: FDA-Public Use
  Company Number: US-FRI-1000067662

PATIENT
  Age: 60 Year
  Sex: Male

DRUGS (1)
  1. TUDORZA PRESSAIR [Suspect]
     Indication: CHRONIC OBSTRUCTIVE PULMONARY DISEASE
     Dosage: 400MCG
     Route: 055
     Dates: start: 201310, end: 2014

REACTIONS (1)
  - Death [Fatal]
